FAERS Safety Report 8801116 (Version 5)
Quarter: 2013Q4

REPORT INFORMATION
  Report Type: Spontaneous
  Country: GB (occurrence: GB)
  Receive Date: 20120921
  Receipt Date: 20131202
  Transmission Date: 20140711
  Serious: Yes (Hospitalization)
  Sender: FDA-Public Use
  Company Number: GB-VIIV HEALTHCARE LIMITED-B0830199A

PATIENT
  Age: 34 Year
  Sex: Female

DRUGS (8)
  1. ZIDOVUDINE [Suspect]
     Indication: ANTIVIRAL TREATMENT
     Dosage: 600MG PER DAY
     Route: 048
     Dates: start: 20090101, end: 20100610
  2. LAMIVUDINE-HIV [Suspect]
     Indication: ANTIVIRAL TREATMENT
     Dosage: 300MG PER DAY
     Route: 048
     Dates: start: 20090101, end: 20100610
  3. ISENTRESS [Suspect]
     Indication: HIV INFECTION
     Dosage: 3200MG PER DAY
     Route: 065
     Dates: start: 20100610
  4. NEVIRAPINE [Suspect]
     Indication: ANTIVIRAL TREATMENT
     Dosage: 400MG PER DAY
     Route: 048
     Dates: start: 20090101, end: 20100610
  5. KALETRA [Suspect]
     Indication: ANTIVIRAL TREATMENT
     Route: 048
     Dates: start: 20100610
  6. VIREAD [Suspect]
     Indication: ANTIVIRAL TREATMENT
     Dosage: 300MG PER DAY
     Route: 048
     Dates: start: 20100610
  7. KALETRA [Suspect]
     Indication: HIV INFECTION
  8. VIREAD [Suspect]
     Indication: HIV INFECTION

REACTIONS (5)
  - Hepatocellular injury [Unknown]
  - Caesarean section [Unknown]
  - Exposure during pregnancy [Recovered/Resolved]
  - Alanine aminotransferase increased [Unknown]
  - Aspartate aminotransferase increased [Unknown]
